FAERS Safety Report 5406387-5 (Version None)
Quarter: 2007Q3

REPORT INFORMATION
  Report Type: 
  Country: None (occurrence: None)
  Receive Date: 20070806
  Receipt Date: 20070723
  Transmission Date: 20080115
  Serious: Yes (Hospitalization)
  Sender: FDA-Public Use
  Company Number: US-SHR-US-2007-025386

PATIENT
  Age: 27 Year
  Sex: Female

DRUGS (1)
  1. BETASERON [Suspect]
     Dosage: 8 MIU, EVERY 2D
     Route: 058
     Dates: start: 20070705, end: 20070712

REACTIONS (4)
  - CHROMATURIA [None]
  - OCULAR ICTERUS [None]
  - URINE ANALYSIS ABNORMAL [None]
  - YELLOW SKIN [None]
